FAERS Safety Report 21527175 (Version 2)
Quarter: 2022Q4

REPORT INFORMATION
  Report Type: Report from Study
  Country: US (occurrence: US)
  Receive Date: 20221031
  Receipt Date: 20221114
  Transmission Date: 20230113
  Serious: Yes (Other)
  Sender: FDA-Public Use
  Company Number: US-ABBVIE-4148259

PATIENT
  Age: 44 Year
  Sex: Female
  Weight: 152.86 kg

DRUGS (7)
  1. SYNTHROID [Suspect]
     Active Substance: LEVOTHYROXINE SODIUM
     Indication: Hypothyroidism
     Route: 048
     Dates: start: 2010
  2. LORTEC [Concomitant]
     Indication: Headache
     Route: 065
  3. THEOPHYLLINE [Concomitant]
     Active Substance: THEOPHYLLINE
     Indication: Asthma
     Route: 065
  4. LOSARTAN [Concomitant]
     Active Substance: LOSARTAN
     Indication: Blood pressure measurement
     Route: 065
  5. ARMOUR THYROID [Suspect]
     Active Substance: THYROID, PORCINE
     Indication: Hypothyroidism
     Dosage: 180 MILLIGRAM
     Route: 048
     Dates: start: 20220912
  6. ARMOUR THYROID [Suspect]
     Active Substance: THYROID, PORCINE
     Indication: Hypothyroidism
     Dosage: 60 MILLIGRAM
     Route: 048
     Dates: start: 2010, end: 20220911
  7. ALBUTEROL [Concomitant]
     Active Substance: ALBUTEROL
     Indication: Asthma
     Route: 065

REACTIONS (3)
  - Thyroid function test abnormal [Unknown]
  - Dyspnoea [Recovered/Resolved]
  - Goitre [Recovered/Resolved]

NARRATIVE: CASE EVENT DATE: 20220101
